FAERS Safety Report 25245664 (Version 1)
Quarter: 2025Q2

REPORT INFORMATION
  Report Type: Spontaneous
  Country: US (occurrence: None)
  Receive Date: 20250426
  Receipt Date: 20250426
  Transmission Date: 20250717
  Serious: Yes (Hospitalization)
  Sender: FDA-CTU
  Company Number: None

PATIENT
  Age: 66 Year
  Sex: Male
  Weight: 82.3 kg

DRUGS (1)
  1. ERBITUX [Suspect]
     Active Substance: CETUXIMAB

REACTIONS (4)
  - Back pain [None]
  - Gait disturbance [None]
  - Hypoaesthesia [None]
  - Spinal disorder [None]

NARRATIVE: CASE EVENT DATE: 20250321
